FAERS Safety Report 15934725 (Version 1)
Quarter: 2019Q1

REPORT INFORMATION
  Report Type: Spontaneous
  Country: US (occurrence: US)
  Receive Date: 20190207
  Receipt Date: 20190207
  Transmission Date: 20190417
  Serious: No
  Sender: FDA-Public Use
  Company Number: US-NEUROCRINE BIOSCIENCES INC.-2019NBI00308

PATIENT
  Age: 53 Year
  Sex: Female
  Weight: 103.51 kg

DRUGS (2)
  1. INGREZZA [Suspect]
     Active Substance: VALBENAZINE
     Indication: TARDIVE DYSKINESIA
     Route: 048
  2. INGREZZA [Suspect]
     Active Substance: VALBENAZINE
     Route: 048

REACTIONS (3)
  - Somnolence [Recovered/Resolved]
  - Anger [Recovered/Resolved]
  - Homicidal ideation [Recovered/Resolved]

NARRATIVE: CASE EVENT DATE: 201812
